FAERS Safety Report 8272142-4 (Version None)
Quarter: 2012Q2

REPORT INFORMATION
  Report Type: 
  Country: None (occurrence: None)
  Receive Date: 20120410
  Receipt Date: 20120322
  Transmission Date: 20120825
  Serious: No
  Sender: FDA-Public Use
  Company Number: US-ASTRAZENECA-2012SE19528

PATIENT
  Age: 54 Year
  Sex: Female

DRUGS (13)
  1. HUMALOG FLEXPEN [Concomitant]
  2. GLIPIZIDE [Concomitant]
  3. MULTI-VITAMINS [Concomitant]
  4. PRAVASTATIN SODIUM [Concomitant]
  5. ZOMETA [Concomitant]
  6. VANDETANIB [Suspect]
     Indication: THYROID CANCER
     Route: 048
  7. LEVOTHYROXINE SODIUM [Concomitant]
  8. POTASSIUM CHLORIDE CRYS CR [Concomitant]
  9. VITAMIN D [Concomitant]
  10. LEVEMIR [Concomitant]
  11. CALCIUM 600 PLUS D HIGH POTENCY [Concomitant]
  12. DIPHENOXYLATE HCL + ATROPINE SULFATE [Concomitant]
  13. NUVIGIL [Concomitant]

REACTIONS (4)
  - BACK PAIN [None]
  - FATIGUE [None]
  - OEDEMA PERIPHERAL [None]
  - ERYTHEMA [None]
